FAERS Safety Report 24001060 (Version 1)
Quarter: 2024Q2

REPORT INFORMATION
  Report Type: Spontaneous
  Country: US (occurrence: None)
  Receive Date: 20240621
  Receipt Date: 20240621
  Transmission Date: 20240716
  Serious: Yes (Hospitalization)
  Sender: FDA-Public Use
  Company Number: None

PATIENT
  Age: 74 Year
  Sex: Male
  Weight: 101.2 kg

DRUGS (1)
  1. VANCOMYCIN HYDROCHLORIDE [Suspect]
     Active Substance: VANCOMYCIN HYDROCHLORIDE
     Indication: Product used for unknown indication
     Dosage: 1 GM EVERY DAY IV?
     Route: 042
     Dates: start: 20221031, end: 20221031

REACTIONS (8)
  - Cardiac arrest [None]
  - Presyncope [None]
  - Urinary tract infection [None]
  - Hydronephrosis [None]
  - Pleural effusion [None]
  - Loss of consciousness [None]
  - Oxygen saturation decreased [None]
  - Blood pressure systolic decreased [None]

NARRATIVE: CASE EVENT DATE: 20221031
